FAERS Safety Report 20701210 (Version 1)
Quarter: 2022Q2

REPORT INFORMATION
  Report Type: Spontaneous
  Country: US (occurrence: US)
  Receive Date: 20220412
  Receipt Date: 20220412
  Transmission Date: 20220721
  Serious: No
  Sender: FDA-Public Use
  Company Number: US-PFIZER INC-2021748109

PATIENT
  Age: 81 Year
  Sex: Male
  Weight: 66.68 kg

DRUGS (1)
  1. LATANOPROST [Suspect]
     Active Substance: LATANOPROST
     Indication: Macular degeneration
     Dosage: 2 DROPS IN EACH EYE

REACTIONS (9)
  - Vision blurred [Unknown]
  - Feeling hot [Unknown]
  - Pain [Unknown]
  - Hot flush [Unknown]
  - Conjunctivitis [Unknown]
  - Visual impairment [Unknown]
  - Flushing [Unknown]
  - Skin disorder [Unknown]
  - Burning sensation [Unknown]

NARRATIVE: CASE EVENT DATE: 20210621
